FAERS Safety Report 8903750 (Version 1)
Quarter: 2012Q4

REPORT INFORMATION
  Report Type: 
  Country: US (occurrence: US)
  Receive Date: 20121113
  Receipt Date: 20121113
  Transmission Date: 20130627
  Serious: No
  Sender: FDA-Public Use
  Company Number: US-AMGEN-USASP2012009725

PATIENT
  Age: 70 Year
  Sex: Female

DRUGS (4)
  1. ENBREL [Suspect]
     Indication: RHEUMATOID ARTHRITIS
     Dosage: 50 mg, qwk
     Dates: start: 201108
  2. ENBREL [Suspect]
     Indication: PSORIATIC ARTHROPATHY
  3. METHOTREXATE [Concomitant]
  4. FOLIC ACID [Concomitant]

REACTIONS (1)
  - Sinus disorder [Not Recovered/Not Resolved]
